FAERS Safety Report 13055424 (Version 2)
Quarter: 2017Q1

REPORT INFORMATION
  Report Type: Spontaneous
  Country: JP (occurrence: JP)
  Receive Date: 20161222
  Receipt Date: 20170202
  Transmission Date: 20170428
  Serious: Yes (Death)
  Sender: FDA-Public Use
  Company Number: JP-MYLANLABS-2016M1056586

PATIENT
  Age: 66 Year
  Sex: Female

DRUGS (2)
  1. PREDNISOLONE MYLAN [Suspect]
     Active Substance: PREDNISOLONE
     Dosage: INCREASED DOSE (UNKNOWN)
     Route: 065
  2. PREDNISOLONE MYLAN [Suspect]
     Active Substance: PREDNISOLONE
     Indication: VASCULITIS
     Dosage: 1.0 MG/KG/DAY; DOSE WAS INCREASED DUE TO INTERSTITIAL PNEUMONIA
     Route: 065

REACTIONS (2)
  - Disseminated tuberculosis [Fatal]
  - Acute respiratory distress syndrome [Fatal]
